FAERS Safety Report 7699604-2 (Version None)
Quarter: 2011Q3

REPORT INFORMATION
  Report Type: 
  Country: None (occurrence: None)
  Receive Date: 20110822
  Receipt Date: 20110812
  Transmission Date: 20111222
  Serious: Yes (Hospitalization)
  Sender: FDA-Public Use
  Company Number: US-BIOGENIDEC-2011BI030853

PATIENT
  Age: 58 Year
  Sex: Female

DRUGS (1)
  1. AVONEX [Suspect]
     Indication: MULTIPLE SCLEROSIS
     Route: 030
     Dates: start: 20110222

REACTIONS (4)
  - URINARY TRACT INFECTION [None]
  - MULTIPLE SCLEROSIS [None]
  - BLOOD PRESSURE FLUCTUATION [None]
  - MULTIPLE SCLEROSIS RELAPSE [None]
